FAERS Safety Report 20422829 (Version 2)
Quarter: 2022Q1

REPORT INFORMATION
  Report Type: Report from Study
  Country: CN (occurrence: CN)
  Receive Date: 20220203
  Receipt Date: 20220208
  Transmission Date: 20220423
  Serious: Yes (Other)
  Sender: FDA-Public Use
  Company Number: CN-002147023-NVSC2022CN020203

PATIENT

DRUGS (3)
  1. RUXOLITINIB [Suspect]
     Active Substance: RUXOLITINIB
     Indication: Myelofibrosis
     Dosage: 06 DOSAGE FORM, BID
     Route: 048
     Dates: start: 201912
  2. RUXOLITINIB [Suspect]
     Active Substance: RUXOLITINIB
     Dosage: 4 DOSAGE FORM, BID
     Route: 048
  3. RUXOLITINIB [Suspect]
     Active Substance: RUXOLITINIB
     Dosage: 04 DOSAGE FORM, BID
     Route: 048
     Dates: start: 20220124

REACTIONS (8)
  - Abnormal faeces [Unknown]
  - Gastrointestinal injury [Recovering/Resolving]
  - Liver injury [Unknown]
  - Red blood cell count decreased [Recovering/Resolving]
  - White blood cell count decreased [Recovering/Resolving]
  - Platelet count increased [Unknown]
  - Dyspepsia [Unknown]
  - Decreased immune responsiveness [Unknown]
